FAERS Safety Report 13868869 (Version 1)
Quarter: 2017Q3

REPORT INFORMATION
  Report Type: Report from Study
  Country: FR (occurrence: FR)
  Receive Date: 20170815
  Receipt Date: 20170815
  Transmission Date: 20171127
  Serious: Yes (Hospitalization)
  Sender: FDA-Public Use
  Company Number: FR-ROCHE-1976307

PATIENT
  Age: 69 Year
  Sex: Female

DRUGS (7)
  1. BEVACIZUMAB. [Suspect]
     Active Substance: BEVACIZUMAB
     Indication: OVARIAN CANCER
     Dosage: LAST DOSE OF BEVACIZUMAB BEFORE THE EVENT 18/JUL/2017?(15MG/KG, D1)
     Route: 042
     Dates: start: 20170718
  2. PARACETAMOL [Concomitant]
     Active Substance: ACETAMINOPHEN
  3. GEMCITABINE [Suspect]
     Active Substance: GEMCITABINE\GEMCITABINE HYDROCHLORIDE
     Indication: OVARIAN CANCER
     Dosage: LAST DOSE OF GEMCITABINE BEFORE THE EVENT 24/JUL/2017 ?(1000 MG/M2, D1 AND D8)
     Route: 042
     Dates: start: 20170718
  4. LODOZ [Concomitant]
     Active Substance: BISOPROLOL FUMARATE\HYDROCHLOROTHIAZIDE
     Dosage: 5/6.25
     Route: 065
  5. CARBOPLATIN. [Suspect]
     Active Substance: CARBOPLATIN
     Indication: OVARIAN CANCER
     Dosage: LAST DOSE OF CARBOPLATIN BEFORE THE EVENT 18/JUL/2017?(AUC = 4, D1)
     Route: 042
     Dates: start: 20170718
  6. ATEZOLIZUMAB. [Suspect]
     Active Substance: ATEZOLIZUMAB
     Indication: OVARIAN CANCER
     Dosage: LAST DOSE OF BLINDED ATEZOLIZUMAB BEFORE THE EVENT 18/JUL/2017
     Route: 042
     Dates: start: 20170718
  7. LERCANIDIPINE [Concomitant]
     Active Substance: LERCANIDIPINE

REACTIONS (1)
  - Pancytopenia [Not Recovered/Not Resolved]

NARRATIVE: CASE EVENT DATE: 20170731
